FAERS Safety Report 14202191 (Version 4)
Quarter: 2018Q1

REPORT INFORMATION
  Report Type: Spontaneous
  Country: SE (occurrence: SE)
  Receive Date: 20171117
  Receipt Date: 20180320
  Transmission Date: 20180508
  Serious: Yes (Hospitalization, Other)
  Sender: FDA-Public Use
  Company Number: SE-ELI_LILLY_AND_COMPANY-SE201711002710

PATIENT
  Age: 64 Year
  Sex: Male

DRUGS (3)
  1. ZYPREXA [Suspect]
     Active Substance: OLANZAPINE
     Indication: SCHIZOAFFECTIVE DISORDER
     Dosage: UNK, UNKNOWN
     Route: 065
  2. CISORDINOL                         /00876702/ [Suspect]
     Active Substance: ZUCLOPENTHIXOL
     Indication: SCHIZOAFFECTIVE DISORDER
     Dosage: UNK, UNKNOWN
     Route: 065
  3. ZYPADHERA [Suspect]
     Active Substance: OLANZAPINE PAMOATE
     Indication: SCHIZOAFFECTIVE DISORDER
     Dosage: 300 MG, 2/W
     Route: 065

REACTIONS (13)
  - Aggression [Unknown]
  - Feeling abnormal [Unknown]
  - Mental disorder [Unknown]
  - Schizophrenia [Unknown]
  - Anxiety [Unknown]
  - Delusion [Unknown]
  - Drug effect decreased [Unknown]
  - Paranoia [Unknown]
  - Arthralgia [Unknown]
  - Suicidal ideation [Unknown]
  - Sedation [Unknown]
  - Stress [Unknown]
  - Gait disturbance [Unknown]
